FAERS Safety Report 11343428 (Version 3)
Quarter: 2015Q3

REPORT INFORMATION
  Report Type: Spontaneous
  Country: US (occurrence: US)
  Receive Date: 20150806
  Receipt Date: 20150925
  Transmission Date: 20151125
  Serious: Yes (Other)
  Sender: FDA-Public Use
  Company Number: US-AMGEN-USASL2015079205

PATIENT
  Age: 36 Year
  Sex: Female

DRUGS (1)
  1. ENBREL [Suspect]
     Active Substance: ETANERCEPT
     Indication: RHEUMATOID ARTHRITIS
     Dosage: 50 MG, QWK
     Route: 058
     Dates: start: 201504

REACTIONS (7)
  - Decreased immune responsiveness [Unknown]
  - Malaise [Unknown]
  - Rheumatoid arthritis [Unknown]
  - Injection site pain [Unknown]
  - Fibromyalgia [Unknown]
  - Cough [Recovering/Resolving]
  - Muscle spasms [Unknown]

NARRATIVE: CASE EVENT DATE: 2015
